FAERS Safety Report 9890863 (Version 1)
Quarter: 2014Q1

REPORT INFORMATION
  Report Type: Spontaneous
  Country: US (occurrence: None)
  Receive Date: 20140210
  Receipt Date: 20140210
  Transmission Date: 20141002
  Serious: No
  Sender: FDA-Public Use
  Company Number: None

PATIENT
  Age: 11 Year
  Sex: Female

DRUGS (1)
  1. METHYLPHENIDATE HCL [Suspect]
     Indication: ATTENTION DEFICIT/HYPERACTIVITY DISORDER
     Route: 048
     Dates: start: 20131101, end: 20140206

REACTIONS (7)
  - Drug effect decreased [None]
  - Disturbance in attention [None]
  - Feeling jittery [None]
  - Psychomotor hyperactivity [None]
  - Drug dose omission [None]
  - Emotional disorder [None]
  - Crying [None]
